FAERS Safety Report 4366076-5 (Version None)
Quarter: 2004Q2

REPORT INFORMATION
  Report Type: 
  Country: None (occurrence: None)
  Receive Date: 20040527
  Receipt Date: 20040519
  Transmission Date: 20050107
  Serious: Yes (Death, Other)
  Sender: FDA-Public Use
  Company Number: PHBS2004JP06636

PATIENT
  Age: 39 Year
  Sex: Female

DRUGS (4)
  1. CYCLOSPORINE [Suspect]
     Indication: STEM CELL TRANSPLANT
     Dates: start: 20020801
  2. METHOTREXATE [Suspect]
     Indication: STEM CELL TRANSPLANT
     Route: 042
  3. ITRACONAZOLE [Concomitant]
     Dosage: 150 MG/DAY
     Route: 048
  4. AMPHOTERICIN B [Suspect]

REACTIONS (4)
  - COUGH [None]
  - NEPHROPATHY TOXIC [None]
  - PYREXIA [None]
  - ZYGOMYCOSIS [None]
